FAERS Safety Report 11708125 (Version 1)
Quarter: 2015Q4

REPORT INFORMATION
  Report Type: Spontaneous
  Country: US (occurrence: US)
  Receive Date: 20151104
  Receipt Date: 20151104
  Transmission Date: 20160304
  Serious: No
  Sender: FDA-Public Use
  Company Number: US-ELI_LILLY_AND_COMPANY-US201108003900

PATIENT
  Sex: Female

DRUGS (1)
  1. FORTEO [Suspect]
     Active Substance: TERIPARATIDE
     Dosage: 20 UG, UNK

REACTIONS (13)
  - Dyspepsia [Unknown]
  - Upper respiratory tract infection [Unknown]
  - Nausea [Unknown]
  - Diarrhoea [Unknown]
  - Blood albumin increased [Unknown]
  - Blood calcium increased [Not Recovered/Not Resolved]
  - Blood calcium increased [Unknown]
  - Nasopharyngitis [Unknown]
  - Influenza [Unknown]
  - Headache [Unknown]
  - Arthralgia [Unknown]
  - Dizziness [Unknown]
  - Back pain [Unknown]
